FAERS Safety Report 5117404-4 (Version None)
Quarter: 2006Q3

REPORT INFORMATION
  Report Type: 
  Country: None (occurrence: None)
  Receive Date: 20060929
  Receipt Date: 20060920
  Transmission Date: 20061208
  Serious: Yes (Hospitalization)
  Sender: FDA-Public Use
  Company Number: DE-JNJFOC-20060905091

PATIENT
  Sex: Female
  Weight: 72 kg

DRUGS (5)
  1. TOPAMAX [Suspect]
     Route: 048
  2. TOPAMAX [Suspect]
     Indication: EPILEPSY
     Route: 048
  3. CARBIDOPA + LEVODOPA [Concomitant]
     Indication: RESTLESS LEGS SYNDROME
     Route: 048
  4. BELOC ZOK [Concomitant]
     Indication: HYPERTENSION
     Route: 048
  5. TOREM [Concomitant]
     Indication: HYPERTENSION
     Route: 048

REACTIONS (5)
  - APHASIA [None]
  - DELIRIUM [None]
  - EPILEPSY [None]
  - HALLUCINATION, VISUAL [None]
  - POSTICTAL PARALYSIS [None]
